FAERS Safety Report 9195396 (Version 1)
Quarter: 2013Q1

REPORT INFORMATION
  Report Type: Spontaneous
  Country: US (occurrence: US)
  Receive Date: 20130328
  Receipt Date: 20130328
  Transmission Date: 20140127
  Serious: No
  Sender: FDA-Public Use
  Company Number: US-ALLERGAN-1300908US

PATIENT
  Sex: Female

DRUGS (3)
  1. LUMIGAN? 0.01% [Suspect]
     Indication: GLAUCOMA
     Dosage: 2 GTT, UNK
     Route: 047
     Dates: start: 201301
  2. THERATEARS                         /00007001/ [Concomitant]
     Indication: DRY EYE
     Dosage: UNK UNK, PRN
     Route: 047
  3. IPRATROPIUM BROMIDE [Concomitant]
     Indication: RHINORRHOEA
     Dosage: UNK UNK, PRN
     Route: 045

REACTIONS (7)
  - Eyelid disorder [Unknown]
  - Eye swelling [Unknown]
  - Skin discolouration [Unknown]
  - Instillation site pruritus [Unknown]
  - Instillation site pain [Unknown]
  - Eye irritation [Unknown]
  - Ocular hyperaemia [Recovered/Resolved]
